FAERS Safety Report 8395519-5 (Version None)
Quarter: 2012Q2

REPORT INFORMATION
  Report Type: 
  Country: None (occurrence: None)
  Receive Date: 20120530
  Receipt Date: 20110602
  Transmission Date: 20120825
  Serious: No
  Sender: FDA-Public Use
  Company Number: US-GLAXOSMITHKLINE-A0930071A

PATIENT
  Age: 56 Year
  Sex: Female

DRUGS (6)
  1. PREDNISONE TAB [Concomitant]
     Indication: BACK PAIN
     Route: 048
  2. VENTOLIN [Suspect]
     Indication: CHRONIC OBSTRUCTIVE PULMONARY DISEASE
     Dosage: 2PUFF IN THE MORNING
     Route: 055
     Dates: start: 20110301
  3. VALIUM [Concomitant]
  4. SPIRIVA [Concomitant]
  5. DILAUDID [Concomitant]
     Dates: end: 20110529
  6. ASPIRIN [Concomitant]

REACTIONS (3)
  - RESPIRATORY TRACT INFECTION [None]
  - ILL-DEFINED DISORDER [None]
  - THROAT IRRITATION [None]
